FAERS Safety Report 10422129 (Version 1)
Quarter: 2014Q3

REPORT INFORMATION
  Report Type: Spontaneous
  Country: US (occurrence: US)
  Receive Date: 20140901
  Receipt Date: 20140901
  Transmission Date: 20150326
  Serious: No
  Sender: FDA-Public Use
  Company Number: US-SA-2014SA066872

PATIENT
  Age: 52 Year
  Sex: Female

DRUGS (7)
  1. AVAPRO [Suspect]
     Active Substance: IRBESARTAN
     Indication: BLOOD POTASSIUM DECREASED
     Route: 065
     Dates: start: 2006
  2. AVAPRO [Suspect]
     Active Substance: IRBESARTAN
     Indication: BLOOD ALDOSTERONE INCREASED
     Route: 065
  3. AVAPRO [Suspect]
     Active Substance: IRBESARTAN
     Indication: BLOOD ALDOSTERONE INCREASED
     Route: 065
  4. AVAPRO [Suspect]
     Active Substance: IRBESARTAN
     Indication: BLOOD POTASSIUM DECREASED
     Route: 065
  5. POTASSIUM [Concomitant]
     Active Substance: POTASSIUM
  6. AVAPRO [Suspect]
     Active Substance: IRBESARTAN
     Indication: BLOOD ALDOSTERONE INCREASED
     Route: 065
     Dates: start: 2006
  7. AVAPRO [Suspect]
     Active Substance: IRBESARTAN
     Indication: BLOOD POTASSIUM DECREASED
     Route: 065

REACTIONS (1)
  - Product physical issue [Unknown]
